FAERS Safety Report 11440930 (Version 1)
Quarter: 2015Q3

REPORT INFORMATION
  Report Type: Spontaneous
  Country: US (occurrence: None)
  Receive Date: 20150831
  Receipt Date: 20150831
  Transmission Date: 20151125
  Serious: Yes (Hospitalization)
  Sender: FDA-Public Use
  Company Number: None

PATIENT
  Age: 69 Year
  Sex: Male
  Weight: 108.6 kg

DRUGS (1)
  1. WARFARIN [Suspect]
     Active Substance: WARFARIN
     Indication: DEEP VEIN THROMBOSIS
     Dosage: MG   PO
     Route: 048
     Dates: start: 20091030

REACTIONS (3)
  - Haematoma [None]
  - Fall [None]
  - Hand fracture [None]

NARRATIVE: CASE EVENT DATE: 20150705
